FAERS Safety Report 20923642 (Version 1)
Quarter: 2022Q2

REPORT INFORMATION
  Report Type: Report from Study
  Country: US (occurrence: US)
  Receive Date: 20220607
  Receipt Date: 20220607
  Transmission Date: 20220720
  Serious: Yes (Hospitalization)
  Sender: FDA-Public Use
  Company Number: US-ABBVIE-22K-163-4422626-00

PATIENT
  Age: 17 Year
  Sex: Female
  Weight: 69.008 kg

DRUGS (4)
  1. HUMIRA [Suspect]
     Active Substance: ADALIMUMAB
     Indication: Crohn^s disease
     Route: 058
     Dates: start: 202108, end: 202204
  2. OMEPRAZOLE [Concomitant]
     Active Substance: OMEPRAZOLE
     Indication: Abdominal pain upper
  3. OMEPRAZOLE [Concomitant]
     Active Substance: OMEPRAZOLE
     Indication: Antacid therapy
  4. PREDNISONE [Concomitant]
     Active Substance: PREDNISONE
     Indication: Colitis

REACTIONS (5)
  - Anaemia [Recovering/Resolving]
  - Crohn^s disease [Recovering/Resolving]
  - SARS-CoV-2 test positive [Recovered/Resolved]
  - Frequent bowel movements [Unknown]
  - Drug ineffective [Not Recovered/Not Resolved]

NARRATIVE: CASE EVENT DATE: 20211101
